FAERS Safety Report 8928635 (Version 1)
Quarter: 2012Q4

REPORT INFORMATION
  Report Type: 
  Country: CA (occurrence: CA)
  Receive Date: 20121128
  Receipt Date: 20121128
  Transmission Date: 20130627
  Serious: Yes (Other)
  Sender: FDA-Public Use
  Company Number: PHHY2012CA082455

PATIENT
  Age: 25 Year
  Sex: Female

DRUGS (25)
  1. CLOZARIL [Suspect]
     Indication: PERSONALITY DISORDER
     Dosage: 50 mg, (titrated up to a dose of 450mg/day)
     Dates: start: 2009
  2. CLOZARIL [Suspect]
     Dosage: UNK UKN, UNK
     Route: 048
     Dates: start: 20100208, end: 20120220
  3. CLOZARIL [Suspect]
     Dosage: 450 mg, Daily
     Dates: end: 20120920
  4. TOPIRAMATE [Concomitant]
     Dosage: 100 mg, BID
     Route: 048
  5. VENLAFAXINE [Concomitant]
     Dosage: 75 g, QD (at morning)
     Route: 048
  6. PROPRANOLOL [Concomitant]
     Dosage: 10 mg, BID
     Route: 048
  7. ATROPINE [Concomitant]
  8. TYLENOL [Concomitant]
  9. EFFEXOR XR [Concomitant]
     Dosage: 275 mg, UNK
  10. EFFEXOR XR [Concomitant]
     Dosage: 150 mg, UNK
  11. ATIVAN [Concomitant]
     Dosage: 2 mg, qid and PRN
  12. COGENTIN [Concomitant]
  13. BENZOCAINE [Concomitant]
  14. TRIQUILAR [Concomitant]
  15. POLYSPORIN [Concomitant]
     Dosage: Topical cream
  16. BACTROBAN [Concomitant]
     Dosage: Topical cream
  17. IHLES PASTE [Concomitant]
  18. URISEC [Concomitant]
  19. TOPAMAX [Concomitant]
     Dates: end: 20121010
  20. ZYPREXA [Concomitant]
     Dosage: 5 mg, QD
  21. SEROQUEL [Concomitant]
     Dosage: 25 mg, QID
  22. HALDOL [Concomitant]
     Dosage: 2 mg, q2hrs and PRN (4 doses each 24 hrs)
  23. HALDOL [Concomitant]
     Dosage: 7 mg, qid PRN
  24. HALDOL [Concomitant]
     Dosage: 5 mg, BID (or 2.5 mg 4 times daily prn)
  25. HALDOL [Concomitant]
     Dosage: 2 mg, TID

REACTIONS (8)
  - Intentional self-injury [Unknown]
  - Aggression [Unknown]
  - Abnormal behaviour [Unknown]
  - Agranulocytosis [Recovered/Resolved]
  - White blood cell count decreased [Recovered/Resolved]
  - Neutropenia [Recovered/Resolved]
  - White blood cell count increased [Unknown]
  - Extrapyramidal disorder [Unknown]
